FAERS Safety Report 6759591-8 (Version None)
Quarter: 2010Q2

REPORT INFORMATION
  Report Type: 
  Country: None (occurrence: None)
  Receive Date: 20100608
  Receipt Date: 20100330
  Transmission Date: 20101027
  Serious: Yes (Hospitalization, Other)
  Sender: FDA-Public Use
  Company Number: US-ASTRAZENECA-2006UW08686

PATIENT
  Age: 521 Month
  Sex: Male
  Weight: 112.5 kg

DRUGS (11)
  1. SEROQUEL [Suspect]
     Indication: DEPRESSION
     Route: 048
     Dates: start: 20020501
  2. ZYPREXA [Suspect]
     Indication: DEPRESSION
     Route: 048
     Dates: start: 20020501
  3. RISPERDAL [Suspect]
     Indication: DEPRESSION
     Route: 048
     Dates: start: 20020501
  4. GLUCOPHAGE [Concomitant]
     Indication: TYPE 2 DIABETES MELLITUS
     Route: 048
     Dates: start: 20051214
  5. BYETTA [Concomitant]
     Route: 058
     Dates: start: 20061017
  6. DIOVAN HCT [Concomitant]
     Indication: HYPERTENSION
     Dates: start: 20050812
  7. LANTUS [Concomitant]
     Indication: TYPE 2 DIABETES MELLITUS
     Dosage: 15 UNITS AT BEDTIME, 25 UNITS AT BEDTIME, 30 UNITS AT BEDTIME
     Route: 058
     Dates: start: 20040702
  8. CADUET [Concomitant]
     Indication: HYPERLIPIDAEMIA
     Dosage: 10 MG-20 MG DAILY
     Route: 048
     Dates: start: 20051214
  9. ECOTRIN [Concomitant]
     Route: 048
     Dates: start: 20050812
  10. AMARYL [Concomitant]
     Indication: TYPE 2 DIABETES MELLITUS
     Route: 048
     Dates: start: 20050728
  11. LIPITOR [Concomitant]
     Dates: start: 20050728

REACTIONS (7)
  - BLOOD GLUCOSE INCREASED [None]
  - DIABETES MELLITUS [None]
  - DIABETIC KETOACIDOSIS [None]
  - ERECTILE DYSFUNCTION [None]
  - METABOLIC ACIDOSIS [None]
  - TYPE 1 DIABETES MELLITUS [None]
  - TYPE 2 DIABETES MELLITUS [None]
